FAERS Safety Report 9622511 (Version 2)
Quarter: 2013Q4

REPORT INFORMATION
  Report Type: Spontaneous
  Country: US (occurrence: US)
  Receive Date: 20131015
  Receipt Date: 20131015
  Transmission Date: 20140711
  Serious: No
  Sender: FDA-Public Use
  Company Number: US-PURDUE-USA-2012-0085341

PATIENT
  Age: 85 Year
  Sex: Male
  Weight: 99.32 kg

DRUGS (1)
  1. BUTRANS [Suspect]
     Indication: PAIN
     Dosage: 10 MCG/HR, UNK
     Route: 062
     Dates: start: 20120421, end: 20120425

REACTIONS (3)
  - Application site pruritus [Unknown]
  - Application site irritation [Unknown]
  - Application site rash [Recovered/Resolved]
